FAERS Safety Report 7424968-4 (Version None)
Quarter: 2011Q2

REPORT INFORMATION
  Report Type: 
  Country: None (occurrence: None)
  Receive Date: 20110419
  Receipt Date: 20110325
  Transmission Date: 20111010
  Serious: Yes (Hospitalization, Other)
  Sender: FDA-Public Use
  Company Number: US-BAYER-2010-003081

PATIENT
  Age: 29 Year
  Sex: Female
  Weight: 61 kg

DRUGS (10)
  1. YASMIN [Suspect]
     Indication: CONTRACEPTION
  2. YASMIN [Suspect]
     Indication: PREMENSTRUAL SYNDROME
  3. SLIM QUICK [Concomitant]
     Indication: DECREASED APPETITE
     Dosage: UNK
     Dates: start: 20081201
  4. ASCORBIC ACID [Concomitant]
     Dosage: UNK
     Dates: start: 19970101, end: 20100101
  5. YAZ [Suspect]
     Indication: CONTRACEPTION
     Dosage: UNK
     Route: 048
     Dates: start: 20071001, end: 20081225
  6. IBUPROFEN [Concomitant]
     Dosage: UNK
     Dates: start: 19970101, end: 20100101
  7. CLONAZEPAM [Concomitant]
     Indication: PANIC DISORDER
     Dosage: UNK
     Dates: start: 20070401, end: 20091001
  8. YAZ [Suspect]
     Indication: PREMENSTRUAL SYNDROME
  9. EMSAM PATCH [Concomitant]
     Indication: DEPRESSION
     Dosage: UNK
     Dates: start: 20070601, end: 20091001
  10. ZYPREXA [Concomitant]
     Indication: BIPOLAR DISORDER
     Dosage: UNK
     Dates: start: 20080601, end: 20090401

REACTIONS (6)
  - EMOTIONAL DISTRESS [None]
  - PAIN [None]
  - DYSPNOEA [None]
  - PULMONARY EMBOLISM [None]
  - CHEST PAIN [None]
  - INJURY [None]
